FAERS Safety Report 13708645 (Version 10)
Quarter: 2020Q2

REPORT INFORMATION
  Report Type: Report from Study
  Country: US (occurrence: US)
  Receive Date: 20170630
  Receipt Date: 20200629
  Transmission Date: 20200713
  Serious: Yes (Hospitalization, Disabling, Other)
  Sender: FDA-Public Use
  Company Number: US-ACTELION-A-US2017-155895

PATIENT
  Age: 72 Year
  Sex: Female
  Weight: 43.54 kg

DRUGS (6)
  1. UPTRAVI [Suspect]
     Active Substance: SELEXIPAG
     Dosage: 400 MCG, BID
     Route: 048
  2. UPTRAVI [Suspect]
     Active Substance: SELEXIPAG
     Dosage: 1400 MCG, BID
     Route: 048
  3. OPSUMIT [Suspect]
     Active Substance: MACITENTAN
     Indication: PULMONARY ARTERIAL HYPERTENSION
     Dosage: 10 MG, QD
     Route: 048
     Dates: start: 20151216
  4. UPTRAVI [Suspect]
     Active Substance: SELEXIPAG
     Indication: PULMONARY ARTERIAL HYPERTENSION
     Dosage: 1600 MCG, BID
     Route: 048
     Dates: start: 201611
  5. ADCIRCA [Concomitant]
     Active Substance: TADALAFIL
  6. OXYGEN. [Concomitant]
     Active Substance: OXYGEN
     Dosage: 6 L, UNK
     Route: 045

REACTIONS (24)
  - Liver function test increased [Unknown]
  - Aspartate aminotransferase increased [Unknown]
  - Troponin I increased [Unknown]
  - Hypoxia [Recovered/Resolved]
  - Dyspnoea [Recovered/Resolved]
  - Alanine aminotransferase increased [Unknown]
  - Product dose omission [Unknown]
  - Rhonchi [Recovered/Resolved]
  - Hilar lymphadenopathy [Unknown]
  - Pyrexia [Recovered/Resolved]
  - Acute respiratory failure [Recovered/Resolved]
  - Pulmonary mass [Unknown]
  - Blood lactic acid increased [Recovered/Resolved]
  - Pneumonia [Unknown]
  - Lymphadenopathy mediastinal [Unknown]
  - Septic shock [Recovered/Resolved]
  - Hypotension [Recovered/Resolved]
  - Oxygen saturation decreased [Recovering/Resolving]
  - Pneumothorax spontaneous [Unknown]
  - Lung neoplasm malignant [Unknown]
  - Spinal compression fracture [Unknown]
  - Mental status changes [Recovered/Resolved]
  - Loss of consciousness [Unknown]
  - Cough [Not Recovered/Not Resolved]

NARRATIVE: CASE EVENT DATE: 2016
